FAERS Safety Report 4723519-2 (Version None)
Quarter: 2005Q3

REPORT INFORMATION
  Report Type: 
  Country: None (occurrence: None)
  Receive Date: 20050721
  Receipt Date: 20050721
  Transmission Date: 20060218
  Serious: Yes (Hospitalization)
  Sender: FDA-Public Use
  Company Number: None

PATIENT
  Age: 23 Year
  Sex: Male
  Weight: 63.5036 kg

DRUGS (6)
  1. DEXAMETHASONE [Suspect]
     Indication: CHEMOTHERAPY
     Dosage: 20MG 1 DOSE X 5 DAY ORAL
     Route: 048
     Dates: start: 20041007, end: 20041011
  2. DEXAMETHASONE [Suspect]
     Indication: PREMEDICATION
     Dosage: 20MG 1 DOSE X 5 DAY ORAL
     Route: 048
     Dates: start: 20041007, end: 20041011
  3. DEXAMETHASONE [Suspect]
     Indication: PROPHYLAXIS OF NAUSEA AND VOMITING
     Dosage: 20MG 1 DOSE X 5 DAY ORAL
     Route: 048
     Dates: start: 20041007, end: 20041011
  4. . [Concomitant]
  5. CISPLATIN [Concomitant]
  6. ETOPOSIDE [Concomitant]

REACTIONS (15)
  - ABNORMAL BEHAVIOUR [None]
  - AGITATION [None]
  - AKATHISIA [None]
  - DELUSION [None]
  - GRANDIOSITY [None]
  - IMPULSE-CONTROL DISORDER [None]
  - INSOMNIA [None]
  - JUDGEMENT IMPAIRED [None]
  - MANIA [None]
  - MEMORY IMPAIRMENT [None]
  - MUSCLE RIGIDITY [None]
  - PARANOIA [None]
  - PRESSURE OF SPEECH [None]
  - SHARED PSYCHOTIC DISORDER [None]
  - THINKING ABNORMAL [None]
